APPROVED DRUG PRODUCT: MEDROL
Active Ingredient: METHYLPREDNISOLONE
Strength: 32MG
Dosage Form/Route: TABLET;ORAL
Application: N011153 | Product #006 | TE Code: AB
Applicant: PFIZER INC
Approved: Approved Prior to Jan 1, 1982 | RLD: Yes | RS: Yes | Type: RX